FAERS Safety Report 9412472 (Version 2)
Quarter: 2014Q1

REPORT INFORMATION
  Report Type: Spontaneous
  Country: US (occurrence: US)
  Receive Date: 20130722
  Receipt Date: 20140316
  Transmission Date: 20141002
  Serious: Yes (Hospitalization)
  Sender: FDA-Public Use
  Company Number: US-B.I. PHARMACEUTICALS,INC./RIDGEFIELD-2013-BI-21035BP

PATIENT
  Age: 61 Year
  Sex: Female
  Weight: 50 kg

DRUGS (4)
  1. COMBIVENT [Suspect]
     Indication: CHRONIC OBSTRUCTIVE PULMONARY DISEASE
     Dosage: STRENGTH: 18 MCG / 103 MCG
     Route: 055
     Dates: start: 2009, end: 20130531
  2. COMBIVENT [Suspect]
     Indication: CHRONIC OBSTRUCTIVE PULMONARY DISEASE
     Dosage: STRENGTH: 20 MCG / 100 MCG
     Route: 055
     Dates: start: 20130601
  3. SPIRIVA [Suspect]
     Indication: CHRONIC OBSTRUCTIVE PULMONARY DISEASE
     Dosage: 18 MCG
     Route: 055
     Dates: start: 201305
  4. LISINOPRIL HCTZ [Concomitant]
     Indication: HYPERTENSION
     Dosage: STRENGTH: 20-12.5 MG; DAILY DOSE: 20-12.5 MG
     Route: 048
     Dates: start: 2009

REACTIONS (3)
  - Dyspnoea [Recovered/Resolved]
  - Product quality issue [Unknown]
  - Product quality issue [Unknown]
